FAERS Safety Report 15968242 (Version 1)
Quarter: 2019Q1

REPORT INFORMATION
  Report Type: Spontaneous
  Country: JP (occurrence: JP)
  Receive Date: 20190215
  Receipt Date: 20190215
  Transmission Date: 20190418
  Serious: Yes (Hospitalization)
  Sender: FDA-Public Use
  Company Number: JP-PFIZER INC-2019067193

PATIENT
  Age: 78 Year
  Sex: Male

DRUGS (8)
  1. DOXAZOSIN [DOXAZOSIN MESILATE] [Concomitant]
     Dosage: 4 MG, DAILY
  2. DOXAZOSIN [DOXAZOSIN MESILATE] [Concomitant]
     Dosage: 1 MG, UNK (EVERY EVENING)
  3. NIFEDIPINE. [Concomitant]
     Active Substance: NIFEDIPINE
     Dosage: 40 MG, DAILY
  4. NIFEDIPINE. [Concomitant]
     Active Substance: NIFEDIPINE
     Dosage: 20 MG, DAILY
  5. AZILVA [Concomitant]
     Active Substance: AZILSARTAN KAMEDOXOMIL
     Dosage: 20 MG, UNK (EVERY MORNING)
  6. AMLODIPINE BESILATE [Suspect]
     Active Substance: AMLODIPINE BESYLATE
     Indication: HYPERTENSION
     Dosage: 7.5 MG, DAILY (EVERY MORNING)
     Route: 048
  7. MILLISTAPE [Concomitant]
     Dosage: UNK
  8. DOXAZOSIN [DOXAZOSIN MESILATE] [Concomitant]
     Dosage: 2 MG, DAILY

REACTIONS (4)
  - Lymphadenopathy [Recovered/Resolved]
  - Sweat discolouration [Unknown]
  - Lymph node tuberculosis [Recovered/Resolved]
  - Pain [Unknown]
